FAERS Safety Report 4718542-8 (Version None)
Quarter: 2005Q3

REPORT INFORMATION
  Report Type: 
  Country: None (occurrence: None)
  Receive Date: 20050720
  Receipt Date: 20050708
  Transmission Date: 20060218
  Serious: Yes (Other)
  Sender: FDA-Public Use
  Company Number: CH-SANOFI-SYNTHELABO-A01200504717

PATIENT
  Age: 29 Year
  Sex: Female

DRUGS (8)
  1. TRANXILIUM [Suspect]
     Indication: DEPRESSION
     Route: 048
     Dates: start: 20050601, end: 20050620
  2. TRANXILIUM [Suspect]
     Route: 048
     Dates: start: 20050621, end: 20050625
  3. STILNOX [Suspect]
     Indication: DEPRESSION
     Route: 048
     Dates: start: 20050620, end: 20050625
  4. LEXOTANIL [Suspect]
     Indication: DEPRESSION
     Route: 048
     Dates: start: 20050601, end: 20050620
  5. TEMESTA [Suspect]
     Indication: DEPRESSION
     Dosage: 1 MG PER WEEK
     Route: 048
     Dates: start: 20050601, end: 20050620
  6. FLUCTINE [Suspect]
     Indication: DEPRESSION
     Route: 048
     Dates: start: 20050601, end: 20050620
  7. FLUCTINE [Suspect]
     Route: 048
     Dates: start: 20050621, end: 20050625
  8. ALCOHOL [Concomitant]
     Dosage: 1.1 L
     Route: 048
     Dates: start: 20050601, end: 20050625

REACTIONS (3)
  - ALCOHOL USE [None]
  - DRUG EXPOSURE DURING PREGNANCY [None]
  - PREGNANCY [None]
